FAERS Safety Report 8567832-X (Version None)
Quarter: 2012Q3

REPORT INFORMATION
  Report Type: 
  Country: None (occurrence: None)
  Receive Date: 20120803
  Receipt Date: 20120725
  Transmission Date: 20120928
  Serious: Yes (Hospitalization)
  Sender: FDA-Public Use
  Company Number: JP-PFIZER INC-2012180060

PATIENT
  Age: 53 Year
  Sex: Male
  Weight: 62 kg

DRUGS (24)
  1. IRINOTECAN HYDROCHLORIDE [Suspect]
     Indication: PANCREATIC CARCINOMA
     Dosage: 313 MG, CYCLIC ONCE IN 2WEEKS
     Route: 041
     Dates: start: 20120705
  2. FLUOROURACIL [Suspect]
     Indication: PANCREATIC CARCINOMA
     Dosage: 696 MG, CYCLIC ONCE IN 2WEEKS
     Route: 040
     Dates: start: 20120705
  3. CLINDAMYCIN [Concomitant]
     Dosage: UNK
     Dates: start: 20120716
  4. PRIMPERAN TAB [Concomitant]
     Dosage: UNK
  5. TEPRENONE [Concomitant]
     Dosage: UNK
     Dates: start: 20120715
  6. TPN ELECTROLYTES IN PLASTIC CONTAINER [Concomitant]
     Dosage: UNK
     Dates: start: 20120711
  7. ALPRAZOLAM [Concomitant]
     Dosage: UNK
  8. OXYCONTIN [Concomitant]
     Dosage: UNK
  9. OXALIPLATIN [Suspect]
     Indication: PANCREATIC CARCINOMA
     Dosage: 148 MG, CYCLIC ONCE IN 2WEEKS
     Route: 041
     Dates: start: 20120705
  10. OXYFAST [Concomitant]
     Dosage: UNK
     Dates: start: 20120716, end: 20120723
  11. FLUOROURACIL [Suspect]
     Dosage: 4176 MG, CYCLIC, ONCE IN 2WEEKS
     Route: 041
     Dates: start: 20120705
  12. ALBUMIN TANNATE [Concomitant]
     Dosage: UNK
     Dates: start: 20120714, end: 20120722
  13. LOXONIN [Concomitant]
     Dosage: UNK
  14. CEFEPIME HYDROCHLORIDE [Concomitant]
     Dosage: UNK
     Dates: start: 20120714
  15. LOPERAMIDE [Concomitant]
     Dosage: UNK
     Dates: start: 20120714
  16. ALBUMIN HUMAN [Concomitant]
     Dosage: UNK
     Dates: start: 20120720
  17. LEVOLEUCOVORIN CALCIUM [Suspect]
     Indication: PANCREATIC CARCINOMA
     Dosage: 348 MG, CYCLIC ONCE IN 2WEEKS
     Route: 041
     Dates: start: 20120705
  18. ZYPREXA [Concomitant]
     Dosage: UNK
     Dates: start: 20120710, end: 20120722
  19. SODIUM CHLORIDE [Concomitant]
     Dosage: UNK
     Dates: start: 20120712, end: 20120720
  20. ELNEOPA NO.1 [Concomitant]
     Dosage: UNK
     Dates: start: 20120716, end: 20120720
  21. CEFAZOLIN SODIUM [Concomitant]
     Dosage: UNK
     Dates: start: 20120714
  22. OXYCODONE HYDROCHLORIDE [Concomitant]
  23. LANSOPRAZOLE [Concomitant]
     Dosage: UNK
     Dates: start: 20120716, end: 20120720
  24. PHYSIO 35 [Concomitant]
     Dosage: UNK
     Dates: start: 20120713, end: 20120722

REACTIONS (3)
  - ENTEROCOLITIS [None]
  - DIARRHOEA [None]
  - FEBRILE NEUTROPENIA [None]
